FAERS Safety Report 24451568 (Version 3)
Quarter: 2024Q4

REPORT INFORMATION
  Report Type: Spontaneous
  Country: US (occurrence: US)
  Receive Date: 20241017
  Receipt Date: 20241023
  Transmission Date: 20250115
  Serious: Yes (Other)
  Sender: PFIZER
  Company Number: US-PFIZER INC-PV202400132990

PATIENT
  Age: 87 Year
  Sex: Male
  Weight: 82.1 kg

DRUGS (2)
  1. VYNDAMAX [Suspect]
     Active Substance: TAFAMIDIS
     Indication: Cardiac amyloidosis
     Dosage: 61 MG, 1X/DAY
     Route: 048
     Dates: start: 20240814
  2. ADVAIR HFA [Concomitant]
     Active Substance: FLUTICASONE PROPIONATE\SALMETEROL XINAFOATE
     Dosage: 1 PUFF, INHALATION, 2X/DAY

REACTIONS (6)
  - Herpes zoster oticus [Recovering/Resolving]
  - Pleural effusion [Unknown]
  - Dyspnoea exertional [Unknown]
  - Hypervolaemia [Unknown]
  - Oedema peripheral [Unknown]
  - Peripheral swelling [Recovering/Resolving]

NARRATIVE: CASE EVENT DATE: 20240101
